FAERS Safety Report 5352213-2 (Version None)
Quarter: 2007Q2

REPORT INFORMATION
  Report Type: 
  Country: None (occurrence: None)
  Receive Date: 20070611
  Receipt Date: 20070606
  Transmission Date: 20071010
  Serious: Yes (Death)
  Sender: FDA-Public Use
  Company Number: JP-BRISTOL-MYERS SQUIBB COMPANY-13807938

PATIENT
  Age: 62 Year
  Sex: Male

DRUGS (2)
  1. TAXOL [Suspect]
     Indication: GASTRIC CANCER
     Route: 041
  2. BRIPLATIN [Suspect]
     Indication: GASTRIC CANCER
     Route: 041

REACTIONS (1)
  - BRONCHOPULMONARY ASPERGILLOSIS [None]
